FAERS Safety Report 22034486 (Version 1)
Quarter: 2023Q1

REPORT INFORMATION
  Report Type: Spontaneous
  Country: DE (occurrence: DE)
  Receive Date: 20230224
  Receipt Date: 20230224
  Transmission Date: 20230417
  Serious: Yes (Death)
  Sender: FDA-Public Use
  Company Number: DE-JNJFOC-20230207762

PATIENT
  Age: 30 Year
  Sex: Male

DRUGS (4)
  1. MELPERONE [Interacting]
     Active Substance: MELPERONE
     Indication: Aggression
     Dosage: 100 MILLIGRAM, QID 0.25 DAY
     Route: 065
  2. VALPROIC ACID [Interacting]
     Active Substance: VALPROIC ACID
     Indication: Aggression
     Dosage: 600 MILLIGRAM, BID 0.5 DAY EXTENDED-RELEASE
     Route: 065
  3. ZUCLOPENTHIXOL [Interacting]
     Active Substance: ZUCLOPENTHIXOL
     Indication: Aggression
     Dosage: 10 MILLIGRAM, QID 0.25 DAY
     Route: 065
  4. RISPERDAL [Interacting]
     Active Substance: RISPERIDONE
     Indication: Aggression
     Dosage: 3 MILLIGRAM, BID 0.5 DAY
     Route: 048

REACTIONS (2)
  - Toxicity to various agents [Fatal]
  - Drug interaction [Fatal]
